FAERS Safety Report 19666685 (Version 1)
Quarter: 2021Q3

REPORT INFORMATION
  Report Type: Spontaneous
  Country: CN (occurrence: CN)
  Receive Date: 20210806
  Receipt Date: 20210806
  Transmission Date: 20211014
  Serious: Yes (Other)
  Sender: FDA-Public Use
  Company Number: CN-SUN PHARMACEUTICAL INDUSTRIES LTD-2021R1-306928

PATIENT
  Age: 55 Year
  Sex: Male

DRUGS (4)
  1. PEMETREXED. [Suspect]
     Active Substance: PEMETREXED
     Indication: CHEMOTHERAPY
     Dosage: 1 GRAM, UNK FOR 6 CYCLES
     Route: 065
     Dates: start: 201901, end: 201906
  2. GEFITINIB. [Concomitant]
     Active Substance: GEFITINIB
     Indication: CHEMOTHERAPY
     Dosage: 250 MILLIGRAM, QD
     Route: 065
  3. CARBOPLATIN. [Suspect]
     Active Substance: CARBOPLATIN
     Indication: PRODUCT USED FOR UNKNOWN INDICATION
  4. PEMETREXED. [Suspect]
     Active Substance: PEMETREXED
     Dosage: 1 GRAM, UNK FOR 5 CYCLES
     Route: 065
     Dates: start: 201907, end: 201911

REACTIONS (1)
  - Metastasis [Recovered/Resolved]
